FAERS Safety Report 5142786-7 (Version None)
Quarter: 2006Q4

REPORT INFORMATION
  Report Type: 
  Country: None (occurrence: None)
  Receive Date: 20061027
  Receipt Date: 20061013
  Transmission Date: 20070319
  Serious: Yes (Hospitalization, Other)
  Sender: FDA-Public Use
  Company Number: US200511002394

PATIENT
  Age: 46 Year
  Sex: Female
  Weight: 136.1 kg

DRUGS (6)
  1. ZYPREXA [Suspect]
     Indication: DEPRESSION
     Dosage: SEE IMAGE
     Dates: end: 20050608
  2. ZYPREXA [Suspect]
     Indication: DEPRESSION
     Dosage: SEE IMAGE
     Dates: start: 19980101
  3. QUETIAPINE FUMARATE [Concomitant]
  4. CITALOPRAM HYDROBROMIDE [Concomitant]
  5. FLUOXETINE /N/A/ (FLUOXETINE) [Concomitant]
  6. VENLAFAXINE HCL [Concomitant]

REACTIONS (6)
  - DIABETES MELLITUS NON-INSULIN-DEPENDENT [None]
  - HYPERTENSION [None]
  - MENORRHAGIA [None]
  - OBESITY [None]
  - PRESCRIBED OVERDOSE [None]
  - WEIGHT INCREASED [None]
